FAERS Safety Report 17801185 (Version 2)
Quarter: 2020Q2

REPORT INFORMATION
  Report Type: Spontaneous
  Country: IT (occurrence: IT)
  Receive Date: 20200519
  Receipt Date: 20200521
  Transmission Date: 20200714
  Serious: Yes (Death, Other)
  Sender: FDA-Public Use
  Company Number: IT-SA-2020SA125492

PATIENT
  Sex: Female

DRUGS (1)
  1. CABLIVI [Suspect]
     Active Substance: CAPLACIZUMAB-YHDP
     Indication: THROMBOTIC THROMBOCYTOPENIC PURPURA
     Route: 065

REACTIONS (11)
  - Thrombotic thrombocytopenic purpura [Fatal]
  - ADAMTS13 activity decreased [Fatal]
  - Brain hypoxia [Unknown]
  - Platelet count decreased [Fatal]
  - Pyrexia [Unknown]
  - Haematuria [Unknown]
  - Coma [Fatal]
  - Transfusion reaction [Unknown]
  - Chills [Unknown]
  - Nervous system disorder [Unknown]
  - Genital haemorrhage [Unknown]

NARRATIVE: CASE EVENT DATE: 20200512
